FAERS Safety Report 19092210 (Version 2)
Quarter: 2021Q3

REPORT INFORMATION
  Report Type: Spontaneous
  Country: US (occurrence: US)
  Receive Date: 20210405
  Receipt Date: 20210804
  Transmission Date: 20211014
  Serious: Yes (Other)
  Sender: FDA-Public Use
  Company Number: US-PFIZER INC-2021263104

PATIENT
  Age: 12 Year
  Sex: Male
  Weight: 58.51 kg

DRUGS (4)
  1. LORBRENA [Suspect]
     Active Substance: LORLATINIB
     Dosage: 140 MG, ONE TIME A DAY (FOR 28 DAY CYCLE)
     Route: 048
     Dates: start: 202012
  2. LORBRENA [Suspect]
     Active Substance: LORLATINIB
     Indication: NEUROBLASTOMA
     Dosage: 160 MG
  3. LORBRENA [Suspect]
     Active Substance: LORLATINIB
     Indication: NEOPLASM MALIGNANT
     Dosage: 150 MG
  4. LORBRENA [Suspect]
     Active Substance: LORLATINIB
     Dosage: 165 MG, ONCE A DAY
     Route: 048
     Dates: start: 202012

REACTIONS (7)
  - Neuropathy peripheral [Unknown]
  - Blood cholesterol increased [Unknown]
  - Psychotic disorder [Recovering/Resolving]
  - Feeling abnormal [Unknown]
  - Peripheral swelling [Unknown]
  - Off label use [Unknown]
  - Weight increased [Unknown]

NARRATIVE: CASE EVENT DATE: 202101
